FAERS Safety Report 6731279-9 (Version None)
Quarter: 2010Q2

REPORT INFORMATION
  Report Type: 
  Country: None (occurrence: None)
  Receive Date: 20100517
  Receipt Date: 20100517
  Transmission Date: 20101027
  Serious: No
  Sender: FDA-Public Use
  Company Number: None

PATIENT
  Age: 64 Year
  Sex: Female
  Weight: 58.9676 kg

DRUGS (1)
  1. FEMARA [Suspect]
     Indication: BREAST CANCER
     Dosage: 2.4 MG 1 DAY ORAL
     Route: 048
     Dates: start: 20090301

REACTIONS (4)
  - ARTHRALGIA [None]
  - JOINT STIFFNESS [None]
  - OEDEMA PERIPHERAL [None]
  - PAIN IN EXTREMITY [None]
